FAERS Safety Report 6393745-8 (Version None)
Quarter: 2009Q4

REPORT INFORMATION
  Report Type: 
  Country: None (occurrence: None)
  Receive Date: 20091008
  Receipt Date: 20091002
  Transmission Date: 20100525
  Serious: Yes (Other)
  Sender: FDA-Public Use
  Company Number: ES-AVENTIS-200916032EU

PATIENT
  Age: 80 Year
  Sex: Male

DRUGS (8)
  1. SEGURIL                            /00032601/ [Suspect]
     Route: 042
     Dates: start: 20090604, end: 20090616
  2. CAPTOPRIL [Suspect]
     Dates: start: 20090604, end: 20090610
  3. AMIODARONE HCL [Concomitant]
     Indication: ATRIAL FIBRILLATION
     Route: 048
     Dates: start: 20090604, end: 20090616
  4. ALDACTONE [Concomitant]
     Dates: start: 20090604
  5. ATROVENT [Concomitant]
     Indication: BRONCHITIS
     Dosage: DOSE: UNK
     Route: 055
  6. CLEXANE [Concomitant]
     Route: 058
     Dates: start: 20090604, end: 20090613
  7. HUMALOG [Concomitant]
     Dates: start: 20090604
  8. LANTUS [Concomitant]
     Dates: start: 20090604

REACTIONS (3)
  - CONDITION AGGRAVATED [None]
  - HYPERURICAEMIA [None]
  - RENAL FAILURE [None]
